FAERS Safety Report 12256220 (Version 1)
Quarter: 2016Q2

REPORT INFORMATION
  Report Type: Spontaneous
  Country: US (occurrence: None)
  Receive Date: 20160411
  Receipt Date: 20160411
  Transmission Date: 20160815
  Serious: No
  Sender: FDA-Public Use
  Company Number: None

PATIENT
  Sex: Female

DRUGS (2)
  1. GABAPENTIN. [Suspect]
     Active Substance: GABAPENTIN
  2. ACETAMINOPHEN 30D3 [Suspect]
     Active Substance: ACETAMINOPHEN

REACTIONS (2)
  - Malaise [None]
  - Nerve compression [None]
